FAERS Safety Report 6439775-9 (Version None)
Quarter: 2009Q4

REPORT INFORMATION
  Report Type: 
  Country: None (occurrence: None)
  Receive Date: 20091112
  Receipt Date: 20091112
  Transmission Date: 20100525
  Serious: Yes (Hospitalization)
  Sender: FDA-Public Use
  Company Number: None

PATIENT
  Sex: Female
  Weight: 93.9 kg

DRUGS (1)
  1. SOLIRIS [Suspect]
     Indication: PROPHYLAXIS AGAINST TRANSPLANT REJECTION
     Dosage: 1200 MG 2 IV, 600 MG  12 IV
     Route: 042

REACTIONS (5)
  - HAEMODIALYSIS [None]
  - HYPERKALAEMIA [None]
  - RIGHT VENTRICULAR FAILURE [None]
  - WOUND DEHISCENCE [None]
  - WOUND NECROSIS [None]
